FAERS Safety Report 25464772 (Version 1)
Quarter: 2025Q2

REPORT INFORMATION
  Report Type: Spontaneous
  Country: FR (occurrence: FR)
  Receive Date: 20250622
  Receipt Date: 20250622
  Transmission Date: 20250716
  Serious: Yes (Hospitalization, Other)
  Sender: AUROBINDO
  Company Number: FR-AFSSAPS-NY2025000779

PATIENT
  Age: 54 Year
  Sex: Male
  Weight: 90 kg

DRUGS (7)
  1. LINEZOLID [Suspect]
     Active Substance: LINEZOLID
     Indication: Bacterial infection
     Route: 048
     Dates: start: 20250501, end: 20250515
  2. MEROPENEM [Suspect]
     Active Substance: MEROPENEM
     Indication: Bacterial infection
     Route: 042
     Dates: start: 20250501
  3. OXAZEPAM [Concomitant]
     Active Substance: OXAZEPAM
     Indication: Anxiety
     Dosage: 15 MILLIGRAM, 3 TIMES A DAY
     Route: 048
     Dates: start: 20250502
  4. ATARAX [Concomitant]
     Active Substance: HYDROXYZINE HYDROCHLORIDE
     Indication: Anxiety
     Dosage: 25 MILLIGRAM, ONCE A DAY
     Route: 048
     Dates: start: 20250502, end: 20250507
  5. KEPPRA [Concomitant]
     Active Substance: LEVETIRACETAM
     Indication: Epilepsy
     Dosage: 1000 MILLIGRAM, TWO TIMES A DAY
     Route: 048
  6. Solupred [Concomitant]
     Indication: Small cell lung cancer metastatic
     Dosage: 90 MILLIGRAM, ONCE A DAY
     Route: 048
     Dates: end: 20250514
  7. Solupred [Concomitant]
     Dosage: 80 MILLIGRAM, ONCE A DAY
     Route: 048
     Dates: start: 20250514

REACTIONS (2)
  - Generalised tonic-clonic seizure [Recovered/Resolved]
  - Condition aggravated [Recovered/Resolved]

NARRATIVE: CASE EVENT DATE: 20250513
